FAERS Safety Report 24731332 (Version 1)
Quarter: 2024Q4

REPORT INFORMATION
  Report Type: Spontaneous
  Country: US (occurrence: None)
  Receive Date: 20241212
  Receipt Date: 20241212
  Transmission Date: 20250114
  Serious: No
  Sender: Public
  Company Number: None

PATIENT
  Sex: Female

DRUGS (1)
  1. DUPIXENT [Suspect]
     Active Substance: DUPILUMAB
     Dosage: 300 MG EVERY 2 WEEKS SUBCUTANEOUS
     Route: 058

REACTIONS (3)
  - Arthralgia [None]
  - Toothache [None]
  - Pain in jaw [None]
